FAERS Safety Report 9167754 (Version 1)
Quarter: 2013Q1

REPORT INFORMATION
  Report Type: Spontaneous
  Country: US (occurrence: US)
  Receive Date: 20130318
  Receipt Date: 20130318
  Transmission Date: 20140127
  Serious: Yes (Hospitalization)
  Sender: FDA-Public Use
  Company Number: PHEH2013US006111

PATIENT
  Age: 69 Year
  Sex: Male
  Weight: 117.1 kg

DRUGS (9)
  1. ZOMETA [Suspect]
     Indication: PLASMA CELL MYELOMA
     Dosage: 4 MG/5ML
  2. REVLIMID [Concomitant]
     Dosage: 5 MG, UNK
  3. WARFARIN [Concomitant]
     Dosage: 1 MG, UNK
  4. RANITIDINE [Concomitant]
     Dosage: 300 MG, UNK
  5. DEXAMETHASON [Concomitant]
     Dosage: 1 MG, UNK
  6. AMIODARONE [Concomitant]
     Dosage: 200 MG, UNK
  7. GLIPIZIDE [Concomitant]
     Dosage: 5 MG, UNK
  8. DIOVAN [Concomitant]
     Dosage: 160 MG, UNK
  9. LOVAZA [Concomitant]
     Dosage: 1 MG, UNK

REACTIONS (4)
  - Renal disorder [Unknown]
  - Tachycardia [Unknown]
  - Asthenia [Unknown]
  - Hypotension [Unknown]
